FAERS Safety Report 9853758 (Version 1)
Quarter: 2014Q1

REPORT INFORMATION
  Report Type: Spontaneous
  Country: US (occurrence: US)
  Receive Date: 20140129
  Receipt Date: 20140129
  Transmission Date: 20141002
  Serious: No
  Sender: FDA-Public Use
  Company Number: US-GLAXOSMITHKLINE-A1023727A

PATIENT
  Sex: Female

DRUGS (6)
  1. WELLBUTRIN [Suspect]
     Indication: PRODUCT USED FOR UNKNOWN INDICATION
     Route: 065
  2. BUPROPION HCL [Suspect]
     Indication: DEPRESSION
     Dosage: 150MG TWICE PER DAY
     Route: 048
     Dates: start: 1993
  3. WELLBUTRIN SR [Suspect]
     Indication: DEPRESSION
     Route: 048
  4. PERCOCET [Concomitant]
  5. SYNTHROID [Concomitant]
  6. ZIAC [Concomitant]

REACTIONS (4)
  - Malaise [Unknown]
  - Nausea [Unknown]
  - Drug ineffective [Unknown]
  - Product quality issue [Unknown]
